FAERS Safety Report 16655988 (Version 2)
Quarter: 2020Q1

REPORT INFORMATION
  Report Type: Spontaneous
  Country: CN (occurrence: CN)
  Receive Date: 20190801
  Receipt Date: 20200213
  Transmission Date: 20200409
  Serious: Yes (Other)
  Sender: FDA-Public Use
  Company Number: CN-009507513-1907CHN014237

PATIENT
  Age: 27 Year
  Sex: Male
  Weight: 100 kg

DRUGS (4)
  1. ATORVASTATIN CALCIUM. [Suspect]
     Active Substance: ATORVASTATIN CALCIUM
     Indication: LIPIDS ABNORMAL
     Dosage: 40 MG, QD
     Dates: start: 20190707, end: 20190707
  2. EZETROL [Suspect]
     Active Substance: EZETIMIBE
     Indication: ENDOTHELIAL DYSFUNCTION
     Dosage: 10 MG, QD
     Route: 048
     Dates: start: 20190708, end: 20190715
  3. ATORVASTATIN CALCIUM. [Suspect]
     Active Substance: ATORVASTATIN CALCIUM
     Indication: ENDOTHELIAL DYSFUNCTION
     Dosage: 20 MG, QD
     Route: 048
     Dates: start: 20190708, end: 20190715
  4. EZETROL [Suspect]
     Active Substance: EZETIMIBE
     Indication: LIPIDS ABNORMAL

REACTIONS (1)
  - Hepatic function abnormal [Unknown]

NARRATIVE: CASE EVENT DATE: 20190711
